FAERS Safety Report 7641616-9 (Version None)
Quarter: 2011Q3

REPORT INFORMATION
  Report Type: 
  Country: None (occurrence: None)
  Receive Date: 20110728
  Receipt Date: 20110708
  Transmission Date: 20111222
  Serious: Yes (Hospitalization)
  Sender: FDA-Public Use
  Company Number: US-GLAXOSMITHKLINE-A0748250A

PATIENT
  Age: 63 Year
  Sex: Female
  Weight: 73.2 kg

DRUGS (2)
  1. PREDNISOLONE [Concomitant]
  2. AVANDIA [Suspect]
     Indication: DIABETES MELLITUS
     Dosage: 8MG PER DAY
     Route: 048
     Dates: start: 20040518, end: 20050601

REACTIONS (3)
  - CARDIAC ARREST [None]
  - HEART INJURY [None]
  - MYOCARDIAL INFARCTION [None]
